FAERS Safety Report 21023261 (Version 1)
Quarter: 2022Q2

REPORT INFORMATION
  Report Type: Spontaneous
  Country: US (occurrence: None)
  Receive Date: 20220629
  Receipt Date: 20220629
  Transmission Date: 20220720
  Serious: Yes (Hospitalization)
  Sender: FDA-Public Use
  Company Number: None

PATIENT
  Age: 73 Year
  Sex: Male

DRUGS (1)
  1. IBUPROFEN [Suspect]
     Active Substance: IBUPROFEN
     Indication: Pain
     Route: 048
     Dates: start: 20210808, end: 20210818

REACTIONS (6)
  - Abdominal pain upper [None]
  - Melaena [None]
  - Acute kidney injury [None]
  - Nausea [None]
  - Klebsiella infection [None]
  - Liver abscess [None]
